FAERS Safety Report 25996727 (Version 1)
Quarter: 2025Q4

REPORT INFORMATION
  Report Type: Spontaneous
  Country: EU (occurrence: EU)
  Receive Date: 20251104
  Receipt Date: 20251104
  Transmission Date: 20260117
  Serious: Yes (Hospitalization)
  Sender: ALCON
  Company Number: EU-ALCON LABORATORIES-ALC2025FR005979

PATIENT

DRUGS (1)
  1. ATROPINE [Suspect]
     Active Substance: ATROPINE
     Indication: Product used for unknown indication
     Dosage: 7.5 ML, QD
     Route: 048
     Dates: start: 20251016, end: 20251016

REACTIONS (1)
  - Anticholinergic syndrome [Recovered/Resolved]

NARRATIVE: CASE EVENT DATE: 20251016
